FAERS Safety Report 11552647 (Version 1)
Quarter: 2015Q3

REPORT INFORMATION
  Report Type: Report from Study
  Country: CA (occurrence: CA)
  Receive Date: 20150925
  Receipt Date: 20150925
  Transmission Date: 20151125
  Serious: Yes (Other)
  Sender: FDA-Public Use
  Company Number: CA-JNJFOC-20150912081

PATIENT
  Age: 12 Year
  Sex: Female
  Weight: 60 kg

DRUGS (4)
  1. BENADRYL [Concomitant]
     Active Substance: DIPHENHYDRAMINE HYDROCHLORIDE
     Indication: PREMEDICATION
     Route: 048
     Dates: start: 20150915
  2. REMICADE [Suspect]
     Active Substance: INFLIXIMAB
     Indication: UVEITIS
     Route: 042
     Dates: start: 201502
  3. REMICADE [Suspect]
     Active Substance: INFLIXIMAB
     Indication: UVEITIS
     Route: 042
     Dates: start: 20150915
  4. TYLENOL [Concomitant]
     Active Substance: ACETAMINOPHEN
     Route: 048

REACTIONS (8)
  - Infusion related reaction [Recovering/Resolving]
  - Cough [Recovering/Resolving]
  - Urinary tract infection [Unknown]
  - Dyspnoea [Recovering/Resolving]
  - Vulvovaginal mycotic infection [Unknown]
  - Product use issue [Unknown]
  - Blood urine present [Unknown]
  - Uveitis [Unknown]

NARRATIVE: CASE EVENT DATE: 201502
